FAERS Safety Report 9318346 (Version 9)
Quarter: 2014Q2

REPORT INFORMATION
  Report Type: Spontaneous
  Country: CA (occurrence: None)
  Receive Date: 20130524
  Receipt Date: 20140521
  Transmission Date: 20141212
  Serious: Yes (Other)
  Sender: FDA-Public Use
  Company Number: JPI-P-031921

PATIENT
  Age: 44 Year
  Sex: Female

DRUGS (13)
  1. XYREM [Suspect]
     Indication: NARCOLEPSY
     Dosage: 4.5 GM (2.25 GM, 2 IN 1 D), ORAL
     Route: 048
     Dates: start: 20111019, end: 20111201
  2. XYREM [Suspect]
     Indication: HYPERSENSITIVITY
     Dosage: 4.5 GM (2.25 GM, 2 IN 1 D), ORAL
     Route: 048
     Dates: start: 20111019, end: 20111201
  3. XYREM [Suspect]
     Indication: NARCOLEPSY
     Dosage: 4.5 GM (2.25 GM, 2 IN 1 D), ORAL
     Route: 048
     Dates: start: 20111019, end: 20111201
  4. RABEPRAZOLE (RABEPRAZOLE) [Suspect]
     Indication: PRODUCT USED FOR UNKNOWN INDICATION
     Dates: end: 201304
  5. MODAFINIL [Concomitant]
  6. MULTIVITAMINS [Concomitant]
  7. DEXTROAMPHETAMINE [Concomitant]
  8. ALBUTEROL SULFATE (INHALANT) [Concomitant]
  9. MOMETASONE FUROATE [Concomitant]
  10. ALVESCO (CICLESONIDE) [Concomitant]
  11. VENTOLIN (SALBUTAMOL SULFATE) [Concomitant]
  12. ALLEGRA [Suspect]
     Indication: HYPERSENSITIVITY
  13. CLARITIN ALLERGY AND SINUS [Suspect]
     Indication: MULTIPLE ALLERGIES
     Dosage: SINGLE (PRN,TAKES DAILY)
     Dates: end: 201305

REACTIONS (29)
  - Drug interaction [None]
  - Convulsion [None]
  - Gait disturbance [None]
  - Memory impairment [None]
  - Visual acuity reduced transiently [None]
  - Paralysis [None]
  - Poor quality sleep [None]
  - Hypoaesthesia oral [None]
  - Oral discomfort [None]
  - Paraesthesia [None]
  - Nausea [None]
  - Malaise [None]
  - Fall [None]
  - Cataplexy [None]
  - Altered state of consciousness [None]
  - Sleep disorder [None]
  - Eyelid disorder [None]
  - Gait disturbance [None]
  - Disorientation [None]
  - Cataplexy [None]
  - Blindness transient [None]
  - Pseudoparalysis [None]
  - Hypoaesthesia oral [None]
  - Dyskinesia [None]
  - Product quality issue [None]
  - Sleep talking [None]
  - Oedema mouth [None]
  - Paraesthesia oral [None]
  - Somnolence [None]
